FAERS Safety Report 7499227-4 (Version None)
Quarter: 2011Q2

REPORT INFORMATION
  Report Type: 
  Country: None (occurrence: None)
  Receive Date: 20110524
  Receipt Date: 20110520
  Transmission Date: 20111010
  Serious: Yes (Hospitalization)
  Sender: FDA-Public Use
  Company Number: US-ALLERGAN-1100050US

PATIENT
  Age: 64 Year
  Sex: Male

DRUGS (4)
  1. BOTOX [Suspect]
     Dosage: UNK Q 3 MONTHS
     Dates: start: 19950101, end: 19950101
  2. BOTOX [Suspect]
     Indication: TORTICOLLIS
     Dosage: 200 UNITS, SINGLE
     Route: 030
     Dates: start: 20101001, end: 20101001
  3. TOPROL-XL [Concomitant]
     Indication: BLOOD PRESSURE
  4. DIABETIC MEDICATION NOS [Concomitant]
     Indication: DIABETES MELLITUS

REACTIONS (1)
  - CHEST PAIN [None]
